FAERS Safety Report 25293907 (Version 2)
Quarter: 2025Q2

REPORT INFORMATION
  Report Type: Spontaneous
  Country: US (occurrence: US)
  Receive Date: 20250510
  Receipt Date: 20250602
  Transmission Date: 20250717
  Serious: No
  Sender: SANOFI AVENTIS
  Company Number: US-SA-2025SA124732

PATIENT
  Age: 3 Year
  Sex: Female

DRUGS (5)
  1. DUPIXENT [Suspect]
     Active Substance: DUPILUMAB
     Indication: Dermatitis atopic
     Route: 058
     Dates: start: 20240913
  2. BETAMETHASONE DIPROPIONATE [Concomitant]
     Active Substance: BETAMETHASONE DIPROPIONATE
  3. TRIAMCINOLONE ACETONIDE [Concomitant]
     Active Substance: TRIAMCINOLONE ACETONIDE
  4. DESITIN [ZINC OXIDE] [Concomitant]
  5. TACROLIMUS [Concomitant]
     Active Substance: TACROLIMUS
     Route: 048

REACTIONS (3)
  - Dermatitis atopic [Unknown]
  - Skin plaque [Unknown]
  - Eczema [Unknown]

NARRATIVE: CASE EVENT DATE: 20250301
